FAERS Safety Report 8258780-3 (Version None)
Quarter: 2012Q2

REPORT INFORMATION
  Report Type: 
  Country: None (occurrence: None)
  Receive Date: 20120404
  Receipt Date: 20120328
  Transmission Date: 20120825
  Serious: Yes (Hospitalization)
  Sender: FDA-Public Use
  Company Number: US-TEVA-330422USA

PATIENT
  Sex: Female
  Weight: 84.898 kg

DRUGS (3)
  1. GLYBURIDE [Suspect]
  2. METFORMIN HCL [Suspect]
  3. PIOGLITAZONE [Suspect]
     Dosage: 30 MILLIGRAM;

REACTIONS (6)
  - ABDOMINAL DISTENSION [None]
  - ABDOMINAL PAIN UPPER [None]
  - GALLBLADDER PERFORATION [None]
  - CHOLECYSTITIS [None]
  - WEIGHT INCREASED [None]
  - HUNGER [None]
